FAERS Safety Report 6356451-1 (Version None)
Quarter: 2009Q3

REPORT INFORMATION
  Report Type: 
  Country: None (occurrence: None)
  Receive Date: 20090915
  Receipt Date: 20090910
  Transmission Date: 20100115
  Serious: Yes (Other)
  Sender: FDA-Public Use
  Company Number: A0806753A

PATIENT
  Age: 35 Year
  Sex: Female

DRUGS (2)
  1. LAMICTAL [Suspect]
     Indication: BIPOLAR DISORDER
     Dosage: 25MG TWICE PER DAY
     Route: 048
     Dates: start: 20090628, end: 20090901
  2. WELLBUTRIN [Concomitant]

REACTIONS (4)
  - ANGER [None]
  - HEADACHE [None]
  - HYPOMANIA [None]
  - MYALGIA [None]
